FAERS Safety Report 9969187 (Version 3)
Quarter: 2015Q1

REPORT INFORMATION
  Report Type: Report from Study
  Country: US (occurrence: US)
  Receive Date: 20140306
  Receipt Date: 20150320
  Transmission Date: 20150721
  Serious: Yes (Death, Other)
  Sender: FDA-Public Use
  Company Number: US-ROCHE-1330430

PATIENT
  Age: 86 Year
  Sex: Male

DRUGS (37)
  1. LUCENTIS [Suspect]
     Active Substance: RANIBIZUMAB
     Route: 050
     Dates: start: 20110630
  2. LUCENTIS [Suspect]
     Active Substance: RANIBIZUMAB
     Route: 050
     Dates: start: 20110908
  3. AVASTIN [Suspect]
     Active Substance: BEVACIZUMAB
     Route: 050
     Dates: start: 20091022
  4. PSYLLIUM SEED [Concomitant]
  5. HUMALOG [Concomitant]
     Active Substance: INSULIN LISPRO
  6. IPRATROPIUM BROMIDE. [Concomitant]
     Active Substance: IPRATROPIUM BROMIDE
  7. LUCENTIS [Suspect]
     Active Substance: RANIBIZUMAB
     Route: 050
     Dates: start: 20100520
  8. LUCENTIS [Suspect]
     Active Substance: RANIBIZUMAB
     Route: 050
     Dates: start: 20100708
  9. LUCENTIS [Suspect]
     Active Substance: RANIBIZUMAB
     Route: 050
     Dates: start: 20110217
  10. SENNOSIDES. [Concomitant]
     Active Substance: SENNOSIDES
  11. FUROSEMIDE. [Concomitant]
     Active Substance: FUROSEMIDE
  12. VIGAMOX [Concomitant]
     Active Substance: MOXIFLOXACIN HYDROCHLORIDE
  13. OMEPRAZOLE. [Concomitant]
     Active Substance: OMEPRAZOLE
  14. HYPROMELLOSE [Concomitant]
     Active Substance: HYPROMELLOSES
  15. METHOCARBAMOL. [Concomitant]
     Active Substance: METHOCARBAMOL
  16. METFORMIN HCL [Concomitant]
     Active Substance: METFORMIN HYDROCHLORIDE
  17. LUCENTIS [Suspect]
     Active Substance: RANIBIZUMAB
     Indication: AGE-RELATED MACULAR DEGENERATION
     Route: 050
     Dates: start: 20100128
  18. LUCENTIS [Suspect]
     Active Substance: RANIBIZUMAB
     Route: 050
     Dates: start: 20101021
  19. LUCENTIS [Suspect]
     Active Substance: RANIBIZUMAB
     Route: 050
     Dates: start: 20110428
  20. GUAIFENESIN. [Concomitant]
     Active Substance: GUAIFENESIN
  21. LIDOCAINE. [Concomitant]
     Active Substance: LIDOCAINE
     Indication: AGE-RELATED MACULAR DEGENERATION
  22. DOCUSATE CALCIUM. [Concomitant]
     Active Substance: DOCUSATE CALCIUM
  23. SODIUM FLUORIDE. [Concomitant]
     Active Substance: SODIUM FLUORIDE
  24. LISINOPRIL. [Concomitant]
     Active Substance: LISINOPRIL
  25. LUCENTIS [Suspect]
     Active Substance: RANIBIZUMAB
     Route: 050
     Dates: start: 20100303
  26. AVASTIN [Suspect]
     Active Substance: BEVACIZUMAB
     Indication: AGE-RELATED MACULAR DEGENERATION
     Route: 050
     Dates: start: 20090924
  27. SALSALATE. [Concomitant]
     Active Substance: SALSALATE
  28. METOPROLOL TARTRATE. [Concomitant]
     Active Substance: METOPROLOL TARTRATE
  29. MENTHOL. [Concomitant]
     Active Substance: MENTHOL
  30. PLAVIX [Concomitant]
     Active Substance: CLOPIDOGREL BISULFATE
  31. LUCENTIS [Suspect]
     Active Substance: RANIBIZUMAB
     Route: 050
     Dates: start: 20100405
  32. LUCENTIS [Suspect]
     Active Substance: RANIBIZUMAB
     Route: 050
     Dates: start: 20100826
  33. AVASTIN [Suspect]
     Active Substance: BEVACIZUMAB
     Route: 050
     Dates: start: 20091130
  34. LUCENTIS [Suspect]
     Active Substance: RANIBIZUMAB
     Route: 050
     Dates: start: 20101216
  35. AVASTIN [Suspect]
     Active Substance: BEVACIZUMAB
     Route: 050
     Dates: start: 20091231
  36. DOXEPIN [Concomitant]
     Active Substance: DOXEPIN
  37. PRESERVISION AREDS [Concomitant]

REACTIONS (27)
  - Retinal scar [Unknown]
  - Polydipsia [Unknown]
  - Joint swelling [Unknown]
  - Contusion [Unknown]
  - Lacrimation increased [Unknown]
  - Visual acuity reduced [Unknown]
  - Dyspnoea [Unknown]
  - Vertigo [Unknown]
  - Heart rate irregular [Unknown]
  - Depressed mood [Unknown]
  - Death [Fatal]
  - Maculopathy [Unknown]
  - Cough [Unknown]
  - Hypoaesthesia [Unknown]
  - Headache [Unknown]
  - Muscular weakness [Unknown]
  - Fatigue [Unknown]
  - Retinal neovascularisation [Unknown]
  - Cerebrovascular accident [Unknown]
  - Retinal haemorrhage [Unknown]
  - Eye pain [Unknown]
  - Sinus disorder [Unknown]
  - Back pain [Unknown]
  - Irritability [Unknown]
  - Vision blurred [Unknown]
  - Deafness [Unknown]
  - Temperature intolerance [Unknown]

NARRATIVE: CASE EVENT DATE: 201111
